FAERS Safety Report 24818871 (Version 1)
Quarter: 2025Q1

REPORT INFORMATION
  Report Type: Spontaneous
  Country: CA (occurrence: CA)
  Receive Date: 20250108
  Receipt Date: 20250108
  Transmission Date: 20250409
  Serious: Yes (Hospitalization)
  Sender: SANDOZ
  Company Number: CA-SANDOZ-SDZ2024CA059304

PATIENT
  Age: 86 Year
  Sex: Female

DRUGS (1)
  1. METFORMIN [Suspect]
     Active Substance: METFORMIN HYDROCHLORIDE
     Indication: Diabetes mellitus management
     Route: 065

REACTIONS (2)
  - Lactic acidosis [Recovered/Resolved]
  - Blood lactic acid increased [Recovered/Resolved]
